FAERS Safety Report 6440775-3 (Version None)
Quarter: 2009Q4

REPORT INFORMATION
  Report Type: 
  Country: None (occurrence: None)
  Receive Date: 20091116
  Receipt Date: 20091103
  Transmission Date: 20100525
  Serious: Yes (Other)
  Sender: FDA-Public Use
  Company Number: FR-RANBAXY-2009RR-29154

PATIENT

DRUGS (1)
  1. FENOFIBRATE [Suspect]

REACTIONS (1)
  - AUTOIMMUNE HEPATITIS [None]
